FAERS Safety Report 19445634 (Version 2)
Quarter: 2021Q3

REPORT INFORMATION
  Report Type: Spontaneous
  Country: GB (occurrence: GB)
  Receive Date: 20210622
  Receipt Date: 20210705
  Transmission Date: 20211014
  Serious: No
  Sender: FDA-Public Use
  Company Number: GB-LUPIN PHARMACEUTICALS INC.-2021-09619

PATIENT
  Age: 89 Year
  Sex: Male

DRUGS (1)
  1. MEMANTINE HYDROCHLORIDE LUPIN 20 MG FILM?COATED TABLETS [Suspect]
     Active Substance: MEMANTINE HYDROCHLORIDE
     Indication: DEMENTIA ALZHEIMER^S TYPE
     Dosage: 1 DOSAGE FORM, QD
     Route: 065
     Dates: start: 20210528

REACTIONS (2)
  - No adverse event [Unknown]
  - Drug dose titration not performed [Unknown]

NARRATIVE: CASE EVENT DATE: 20210528
